FAERS Safety Report 7982959-9 (Version None)
Quarter: 2011Q4

REPORT INFORMATION
  Report Type: 
  Country: None (occurrence: None)
  Receive Date: 20111215
  Receipt Date: 20111206
  Transmission Date: 20120403
  Serious: Yes (Hospitalization, Disabling, Other)
  Sender: FDA-Public Use
  Company Number: US-MERCK-1106USA02916

PATIENT
  Age: 54 Year
  Sex: Female
  Weight: 58 kg

DRUGS (4)
  1. FOSAMAX [Suspect]
     Indication: OSTEOPOROSIS
     Route: 048
     Dates: start: 19960101, end: 20060101
  2. UBIDECARENONE [Concomitant]
     Route: 065
  3. VITAMINS (UNSPECIFIED) [Concomitant]
     Route: 065
  4. OMEGA-3 MARINE TRIGLYCERIDES [Concomitant]
     Route: 065

REACTIONS (30)
  - CORNEAL DISORDER [None]
  - TRANSIENT GLOBAL AMNESIA [None]
  - PINEAL GLAND CYST [None]
  - BLOOD GLUCOSE INCREASED [None]
  - ANXIETY [None]
  - NASAL DISORDER [None]
  - MIGRAINE WITH AURA [None]
  - INFLAMMATION [None]
  - INFECTION [None]
  - CORNEAL EROSION [None]
  - FEMUR FRACTURE [None]
  - HIP FRACTURE [None]
  - HYPOVOLAEMIA [None]
  - RETINAL TEAR [None]
  - DEMYELINATION [None]
  - AUTOIMMUNE THYROIDITIS [None]
  - BASAL CELL CARCINOMA [None]
  - CEREBRAL INFARCTION [None]
  - TIBIA FRACTURE [None]
  - HYPOTHYROIDISM [None]
  - DEPRESSION [None]
  - HYPOTENSION [None]
  - HYPOGLYCAEMIA [None]
  - CEREBRAL DISORDER [None]
  - INSOMNIA [None]
  - HEADACHE [None]
  - APPENDIX DISORDER [None]
  - AMNESIA [None]
  - COMPLEX PARTIAL SEIZURES [None]
  - CATARACT [None]
